FAERS Safety Report 24702552 (Version 5)
Quarter: 2025Q1

REPORT INFORMATION
  Report Type: Spontaneous
  Country: IT (occurrence: IT)
  Receive Date: 20241205
  Receipt Date: 20250317
  Transmission Date: 20250409
  Serious: Yes (Other)
  Sender: BAUSCH AND LOMB
  Company Number: IT-BRISTOL-MYERS SQUIBB COMPANY-2024-183122

PATIENT
  Age: 69 Year
  Sex: Male

DRUGS (3)
  1. DEXAMETHASONE [Suspect]
     Active Substance: DEXAMETHASONE
     Indication: Plasma cell myeloma
     Route: 065
  2. LENALIDOMIDE [Suspect]
     Active Substance: LENALIDOMIDE
     Indication: Plasma cell myeloma
     Route: 065
     Dates: start: 20220712
  3. DARATUMUMAB [Suspect]
     Active Substance: DARATUMUMAB
     Indication: Plasma cell myeloma
     Route: 065

REACTIONS (8)
  - Aortic arteriosclerosis [Not Recovered/Not Resolved]
  - Mitral valve sclerosis [Not Recovered/Not Resolved]
  - Aortic aneurysm [Not Recovered/Not Resolved]
  - Condition aggravated [Not Recovered/Not Resolved]
  - Atrial fibrillation [Recovered/Resolved]
  - Aortic dilatation [Not Recovered/Not Resolved]
  - Ventricular hypertrophy [Not Recovered/Not Resolved]
  - Systolic dysfunction [Not Recovered/Not Resolved]

NARRATIVE: CASE EVENT DATE: 20230517
